FAERS Safety Report 6660639-X (Version None)
Quarter: 2010Q1

REPORT INFORMATION
  Report Type: 
  Country: None (occurrence: None)
  Receive Date: 20100331
  Receipt Date: 20100323
  Transmission Date: 20100710
  Serious: Yes (Other)
  Sender: FDA-Public Use
  Company Number: LU-ASTRAZENECA-2010SE12001

PATIENT
  Age: 838 Month
  Sex: Male
  Weight: 85 kg

DRUGS (2)
  1. CASODEX [Suspect]
     Route: 048
  2. ZOLADEX [Suspect]
     Route: 058

REACTIONS (1)
  - THROMBOCYTOPENIA [None]
